FAERS Safety Report 10379600 (Version 2)
Quarter: 2014Q3

REPORT INFORMATION
  Report Type: Spontaneous
  Country: JP (occurrence: JP)
  Receive Date: 20140812
  Receipt Date: 20140827
  Transmission Date: 20150326
  Serious: Yes (Hospitalization)
  Sender: FDA-Public Use
  Company Number: PHHY2014JP098172

PATIENT
  Sex: Female

DRUGS (4)
  1. RIVASTIGMIN [Suspect]
     Active Substance: RIVASTIGMINE
     Indication: DEMENTIA ALZHEIMER^S TYPE
     Dosage: 4.5 MG, ONCE A DAY
     Route: 062
     Dates: end: 201407
  2. RIVASTIGMIN [Suspect]
     Active Substance: RIVASTIGMINE
     Dosage: 4.5 MG, ONCE A DAY
     Route: 062
     Dates: start: 20140801
  3. ASTAT//LANOCONAZOLE [Suspect]
     Active Substance: LANOCONAZOLE
     Indication: FUNGAL TEST POSITIVE
     Dosage: UNK, APPLIED ONCE A DAY
  4. DONEPEZIL HYDROCHLORIDE. [Concomitant]
     Active Substance: DONEPEZIL HYDROCHLORIDE
     Dosage: UNK UKN, UNK
     Dates: start: 201407, end: 20140731

REACTIONS (2)
  - Hepatitis acute [Recovering/Resolving]
  - Rash [Recovered/Resolved]

NARRATIVE: CASE EVENT DATE: 201407
